FAERS Safety Report 11528195 (Version 1)
Quarter: 2015Q3

REPORT INFORMATION
  Report Type: Spontaneous
  Country: US (occurrence: US)
  Receive Date: 20150921
  Receipt Date: 20150921
  Transmission Date: 20151125
  Serious: No
  Sender: FDA-Public Use
  Company Number: US-ASTRAZENECA-2015SE90545

PATIENT
  Age: 44 Year
  Sex: Female
  Weight: 76 kg

DRUGS (2)
  1. NEXIUM 24HR [Suspect]
     Active Substance: ESOMEPRAZOLE MAGNESIUM
     Indication: GASTROENTERITIS
     Route: 048
     Dates: start: 20150908, end: 20150909
  2. NASOCORT [Concomitant]
     Active Substance: BUDESONIDE
     Indication: HYPERSENSITIVITY
     Dosage: UNK

REACTIONS (11)
  - Feeling abnormal [Recovering/Resolving]
  - Dissociation [Recovering/Resolving]
  - Toothache [Recovered/Resolved]
  - Peripheral swelling [Recovering/Resolving]
  - Vision blurred [Recovered/Resolved]
  - Paraesthesia [Recovering/Resolving]
  - Off label use [Unknown]
  - Tremor [Recovering/Resolving]
  - Pain in extremity [Recovering/Resolving]
  - Limb discomfort [Recovering/Resolving]
  - Paraesthesia oral [Recovering/Resolving]

NARRATIVE: CASE EVENT DATE: 20150908
